FAERS Safety Report 24146737 (Version 1)
Quarter: 2024Q3

REPORT INFORMATION
  Report Type: Spontaneous
  Country: HK (occurrence: HK)
  Receive Date: 20240729
  Receipt Date: 20240729
  Transmission Date: 20241017
  Serious: Yes (Hospitalization)
  Sender: CHEPLAPHARM
  Company Number: HK-ROCHE-10000025188

PATIENT
  Age: 33 Year
  Sex: Male

DRUGS (6)
  1. CAPECITABINE [Suspect]
     Active Substance: CAPECITABINE
     Indication: Hepatic cancer
  2. SORAFENIB [Suspect]
     Active Substance: SORAFENIB
     Indication: Hepatic cancer
  3. OXALIPLATIN [Suspect]
     Active Substance: OXALIPLATIN
     Indication: Hepatic cancer
  4. ADEFOVIR DIPIVOXIL [Concomitant]
     Active Substance: ADEFOVIR DIPIVOXIL
  5. DEXAMETHASONE [Concomitant]
     Active Substance: DEXAMETHASONE
  6. TELBIVUDINE [Concomitant]
     Active Substance: TELBIVUDINE

REACTIONS (2)
  - Hemianopia [Unknown]
  - Off label use [Unknown]
